FAERS Safety Report 6135502-3 (Version None)
Quarter: 2009Q1

REPORT INFORMATION
  Report Type: 
  Country: None (occurrence: None)
  Receive Date: 20090327
  Receipt Date: 20090318
  Transmission Date: 20090719
  Serious: Yes (Other)
  Sender: FDA-Public Use
  Company Number: B0558428A

PATIENT
  Sex: Male

DRUGS (9)
  1. RELENZA [Suspect]
     Dosage: 10MG TWICE PER DAY
     Route: 055
     Dates: start: 20090203, end: 20090206
  2. CALONAL [Concomitant]
     Route: 065
  3. PERORIC [Concomitant]
     Indication: GASTROENTERITIS
     Dosage: 1TAB THREE TIMES PER DAY
     Route: 048
     Dates: start: 20090202
  4. THIATON [Concomitant]
     Dosage: 5MG THREE TIMES PER DAY
     Route: 048
     Dates: start: 20090202
  5. BIOFERMIN R [Concomitant]
     Dosage: 2G PER DAY
     Route: 048
     Dates: start: 20090202
  6. TANNALBIN [Concomitant]
     Dosage: 2G PER DAY
     Route: 048
     Dates: start: 20090202
  7. FAMOTIDINE [Concomitant]
     Dosage: 10MG TWICE PER DAY
     Route: 048
     Dates: start: 20090202
  8. FLUID REPLACEMENT [Concomitant]
  9. NAUZELIN [Concomitant]

REACTIONS (9)
  - ALANINE AMINOTRANSFERASE ABNORMAL [None]
  - ASPARTATE AMINOTRANSFERASE ABNORMAL [None]
  - BLOOD CREATINE PHOSPHOKINASE INCREASED [None]
  - BLOOD CREATININE ABNORMAL [None]
  - BLOOD UREA ABNORMAL [None]
  - BLOOD URIC ACID ABNORMAL [None]
  - COUGH [None]
  - LIVER FUNCTION TEST ABNORMAL [None]
  - MYALGIA [None]
